FAERS Safety Report 6383892-9 (Version None)
Quarter: 2009Q3

REPORT INFORMATION
  Report Type: 
  Country: None (occurrence: None)
  Receive Date: 20090929
  Receipt Date: 20090929
  Transmission Date: 20100115
  Serious: No
  Sender: FDA-Public Use
  Company Number: None

PATIENT
  Age: 12 Year
  Sex: Male
  Weight: 49.8957 kg

DRUGS (1)
  1. SINGULAIR [Suspect]
     Indication: ASTHMA
     Dosage: 1 TABLET DAILY/AT NIGHTTIME PO
     Route: 048
     Dates: start: 20090816, end: 20090924

REACTIONS (13)
  - ABNORMAL DREAMS [None]
  - ANGER [None]
  - APATHY [None]
  - ASTHMA [None]
  - FEELING ABNORMAL [None]
  - FEELING OF DESPAIR [None]
  - HOMICIDAL IDEATION [None]
  - MOOD ALTERED [None]
  - NEGATIVE THOUGHTS [None]
  - NIGHTMARE [None]
  - PERSONALITY CHANGE [None]
  - SUICIDAL IDEATION [None]
  - WEIGHT INCREASED [None]
